FAERS Safety Report 4434635-7 (Version None)
Quarter: 2004Q3

REPORT INFORMATION
  Report Type: 
  Country: None (occurrence: None)
  Receive Date: 20040826
  Receipt Date: 20040818
  Transmission Date: 20050211
  Serious: Yes (Death)
  Sender: FDA-Public Use
  Company Number: 04-06-0937

PATIENT
  Age: 61 Year
  Sex: Male
  Weight: 83.4619 kg

DRUGS (4)
  1. CLOZAPINE [Suspect]
     Indication: SCHIZOPHRENIA, PARANOID TYPE
     Dosage: 500MG QD ORAL
     Route: 048
     Dates: start: 20030401, end: 20040624
  2. BUSPIRONE HCL [Concomitant]
  3. CITALOPRAM 60 MG [Concomitant]
  4. DIVALPROEX SODIUM [Concomitant]

REACTIONS (8)
  - AGITATION [None]
  - ANXIETY [None]
  - CIRCULATORY COLLAPSE [None]
  - COMA [None]
  - DYSPNOEA [None]
  - GAIT DISTURBANCE [None]
  - PAIN [None]
  - PALLOR [None]
